FAERS Safety Report 25494062 (Version 1)
Quarter: 2025Q2

REPORT INFORMATION
  Report Type: Report from Study
  Country: US (occurrence: US)
  Receive Date: 20250630
  Receipt Date: 20250630
  Transmission Date: 20250716
  Serious: Yes (Life-Threatening, Hospitalization)
  Sender: MYLAN
  Company Number: US-MYLANLABS-2025M1052651

PATIENT
  Sex: Male
  Weight: 83.6 kg

DRUGS (9)
  1. FENTANYL [Suspect]
     Active Substance: FENTANYL
     Indication: Product used for unknown indication
  2. LENACAPAVIR [Suspect]
     Active Substance: LENACAPAVIR
     Indication: Prophylaxis against HIV infection
     Dates: start: 20250522, end: 20250522
  3. LENACAPAVIR [Suspect]
     Active Substance: LENACAPAVIR
  4. LENACAPAVIR [Suspect]
     Active Substance: LENACAPAVIR
  5. DESCOVY [Concomitant]
     Active Substance: EMTRICITABINE\TENOFOVIR ALAFENAMIDE FUMARATE
  6. REMERON [Concomitant]
     Active Substance: MIRTAZAPINE
  7. SEROQUEL [Concomitant]
     Active Substance: QUETIAPINE FUMARATE
  8. SUBOXONE [Concomitant]
     Active Substance: BUPRENORPHINE HYDROCHLORIDE\NALOXONE HYDROCHLORIDE
  9. DEPAKOTE [Concomitant]
     Active Substance: DIVALPROEX SODIUM

REACTIONS (2)
  - Overdose [Recovered/Resolved]
  - Psychotic disorder [Recovered/Resolved]

NARRATIVE: CASE EVENT DATE: 20250609
